FAERS Safety Report 17600243 (Version 2)
Quarter: 2020Q2

REPORT INFORMATION
  Report Type: Report from Study
  Country: IT (occurrence: IT)
  Receive Date: 20200330
  Receipt Date: 20200504
  Transmission Date: 20200713
  Serious: Yes (Hospitalization)
  Sender: FDA-Public Use
  Company Number: IT-MYLANLABS-2020M1032500

PATIENT
  Age: 43 Year
  Sex: Female

DRUGS (3)
  1. AURADOL [Suspect]
     Active Substance: FROVATRIPTAN SUCCINATE
     Indication: HEADACHE
     Dosage: 1 DOSAGE FORM, PRN
     Route: 048
  2. NIMESULIDE [Suspect]
     Active Substance: NIMESULIDE
     Indication: HEADACHE
     Dosage: 1 DOSAGE FORM, PRN
     Route: 048
  3. IBUPROFEN. [Suspect]
     Active Substance: IBUPROFEN
     Indication: HEADACHE
     Dosage: 1 DOSAGE FORM, PRN
     Route: 048

REACTIONS (2)
  - Headache [Recovering/Resolving]
  - Drug ineffective [Recovering/Resolving]

NARRATIVE: CASE EVENT DATE: 20200205
